FAERS Safety Report 17993828 (Version 1)
Quarter: 2020Q3

REPORT INFORMATION
  Report Type: Report from Study
  Country: JP (occurrence: JP)
  Receive Date: 20200708
  Receipt Date: 20200708
  Transmission Date: 20201103
  Serious: Yes (Hospitalization, Other)
  Sender: FDA-Public Use
  Company Number: JP-SUN PHARMACEUTICAL INDUSTRIES LTD-2020RR-252705

PATIENT
  Age: 31 Month
  Sex: Female

DRUGS (6)
  1. DIAZEPAM. [Suspect]
     Active Substance: DIAZEPAM
     Indication: SEIZURE
  2. THIOPENTAL [Suspect]
     Active Substance: THIOPENTAL
     Indication: SEIZURE
  3. FOSPHENYTOIN [Suspect]
     Active Substance: FOSPHENYTOIN
     Indication: ENCEPHALOPATHY
     Dosage: UNK
     Route: 042
  4. DIAZEPAM. [Suspect]
     Active Substance: DIAZEPAM
     Indication: ENCEPHALOPATHY
     Dosage: UNK
     Route: 042
  5. FOSPHENYTOIN [Suspect]
     Active Substance: FOSPHENYTOIN
     Indication: SEIZURE
  6. THIOPENTAL [Suspect]
     Active Substance: THIOPENTAL
     Indication: ENCEPHALOPATHY
     Dosage: UNK
     Route: 042

REACTIONS (1)
  - Status epilepticus [Unknown]
